FAERS Safety Report 10301999 (Version 1)
Quarter: 2014Q3

REPORT INFORMATION
  Report Type: Spontaneous
  Country: US (occurrence: None)
  Receive Date: 20140709
  Receipt Date: 20140709
  Transmission Date: 20150326
  Serious: Yes (Other)
  Sender: FDA-Public Use
  Company Number: SYM-2014-22632

PATIENT
  Age: 55 Year
  Sex: Female
  Weight: 72.12 kg

DRUGS (4)
  1. CALCIUM (CALCIUM) [Concomitant]
     Active Substance: CALCIUM
  2. FENOFIBRATE. [Suspect]
     Active Substance: FENOFIBRATE
     Indication: BLOOD CHOLESTEROL INCREASED
     Route: 048
     Dates: start: 20140609, end: 20140616
  3. VITAMIN D (ERGOCALCIFEROL) (ERGOCALCIFEROL) [Concomitant]
  4. LISINOPRIL (LISINOPRIL) [Concomitant]
     Active Substance: LISINOPRIL

REACTIONS (4)
  - Feeling abnormal [None]
  - Blood pressure fluctuation [None]
  - Fatigue [None]
  - Liver function test abnormal [None]

NARRATIVE: CASE EVENT DATE: 201406
